FAERS Safety Report 19621565 (Version 1)
Quarter: 2021Q3

REPORT INFORMATION
  Report Type: Spontaneous
  Country: CN (occurrence: CN)
  Receive Date: 20210728
  Receipt Date: 20210728
  Transmission Date: 20211014
  Serious: Yes (Hospitalization)
  Sender: FDA-Public Use
  Company Number: NVSC2021CN166764

PATIENT
  Age: 67 Year
  Sex: Female

DRUGS (2)
  1. CARBAMAZEPINE. [Suspect]
     Active Substance: CARBAMAZEPINE
     Indication: PAIN
     Dosage: 100.0 MG, TID
     Route: 048
     Dates: start: 20210708, end: 20210710
  2. BULLEYACONITINE A [Concomitant]
     Active Substance: BULLEYACONITINE A
     Indication: RHEUMATOID ARTHRITIS
     Dosage: 0.40 G, BID
     Route: 048
     Dates: start: 20210707, end: 20210710

REACTIONS (2)
  - Rash [Recovering/Resolving]
  - Pruritus [Recovering/Resolving]

NARRATIVE: CASE EVENT DATE: 20210710
